FAERS Safety Report 7277956-5 (Version None)
Quarter: 2011Q1

REPORT INFORMATION
  Report Type: 
  Country: None (occurrence: None)
  Receive Date: 20110207
  Receipt Date: 20110124
  Transmission Date: 20110831
  Serious: Yes (Hospitalization, Other)
  Sender: FDA-Public Use
  Company Number: US-ELI_LILLY_AND_COMPANY-US201012001761

PATIENT
  Age: 46 Year
  Sex: Female

DRUGS (4)
  1. ASPIRIN [Concomitant]
     Dosage: 81 MG, UNKNOWN
     Dates: start: 20101114, end: 20101116
  2. SIMVASTATIN [Concomitant]
  3. EFFIENT [Suspect]
     Dosage: 10 MG, DAILY (1/D)
     Dates: start: 20101114, end: 20101117
  4. CITALOPRAM HYDROBROMIDE [Concomitant]

REACTIONS (4)
  - HEAD INJURY [None]
  - HAEMOGLOBIN DECREASED [None]
  - SUBDURAL HAEMATOMA [None]
  - LOSS OF CONSCIOUSNESS [None]
